FAERS Safety Report 20146477 (Version 2)
Quarter: 2022Q1

REPORT INFORMATION
  Report Type: Report from Study
  Country: CN (occurrence: None)
  Receive Date: 20211203
  Receipt Date: 20220104
  Transmission Date: 20220423
  Serious: Yes (Life-Threatening)
  Sender: FDA-Public Use
  Company Number: CN-ROCHE-2970784

PATIENT
  Age: 68 Year
  Sex: Male
  Weight: 53 kg

DRUGS (83)
  1. TIRAGOLUMAB [Suspect]
     Active Substance: TIRAGOLUMAB
     Indication: Small cell lung cancer extensive stage
     Dosage: DATE OF MOST RECENT DOSE OF BLINDED TIRAGOLUMAB PRIOR TO AE ONSET: 25/JUN/2021 AND SAE ONSET:16/SEP/
     Route: 042
     Dates: start: 20210625
  2. ATEZOLIZUMAB [Suspect]
     Active Substance: ATEZOLIZUMAB
     Indication: Small cell lung cancer extensive stage
     Dosage: DATE OF MOST RECENT DOSE OF ATEZOLIZUMAB (1200 MG) PRIOR TO AE ONSET: 25/JUN/2021 AND SAE ONSET:16/S
     Route: 041
     Dates: start: 20210625
  3. CARBOPLATIN [Suspect]
     Active Substance: CARBOPLATIN
     Indication: Small cell lung cancer extensive stage
     Dosage: DATE OF MOST RECENT DOSE OF CARBOPLATIN (491.7 MG) PRIOR TO AE ONSET: 25/JUN/2021 AND SAE ONSET:26/A
     Route: 042
     Dates: start: 20210625
  4. ETOPOSIDE [Suspect]
     Active Substance: ETOPOSIDE
     Indication: Small cell lung cancer extensive stage
     Dosage: DATE OF MOST RECENT DOSE OF ETOPOSIDE (154.8 MG) PRIOR TO AE ONSET: 27/JUN/2021 AND SAE ONSET:28/AUG
     Route: 042
     Dates: start: 20210625
  5. FUROSEMIDE [Concomitant]
     Active Substance: FUROSEMIDE
     Route: 042
     Dates: start: 20210616, end: 20210616
  6. FUROSEMIDE [Concomitant]
     Active Substance: FUROSEMIDE
     Route: 042
     Dates: start: 20210619, end: 20210619
  7. FUROSEMIDE [Concomitant]
     Active Substance: FUROSEMIDE
     Route: 042
     Dates: start: 20210625, end: 20210628
  8. HEPARIN CALCIUM [Concomitant]
     Active Substance: HEPARIN CALCIUM
     Route: 055
     Dates: start: 20210625, end: 20210628
  9. HEPARIN CALCIUM [Concomitant]
     Active Substance: HEPARIN CALCIUM
     Dosage: 4100 OTHER
     Route: 055
     Dates: start: 20210714, end: 20210718
  10. HEPARIN CALCIUM [Concomitant]
     Active Substance: HEPARIN CALCIUM
     Dosage: 4100 OTHER
     Route: 055
     Dates: start: 20210804, end: 20210806
  11. HEPARIN CALCIUM [Concomitant]
     Active Substance: HEPARIN CALCIUM
     Dosage: 4100 IU
     Route: 055
     Dates: start: 20210916, end: 20210916
  12. PALONOSETRON HYDROCHLORIDE [Concomitant]
     Active Substance: PALONOSETRON HYDROCHLORIDE
     Route: 042
     Dates: start: 20210625, end: 20210628
  13. PALONOSETRON HYDROCHLORIDE [Concomitant]
     Active Substance: PALONOSETRON HYDROCHLORIDE
     Route: 042
     Dates: start: 20210714, end: 20210716
  14. PALONOSETRON HYDROCHLORIDE [Concomitant]
     Active Substance: PALONOSETRON HYDROCHLORIDE
     Route: 042
     Dates: start: 20210804, end: 20210806
  15. PALONOSETRON HYDROCHLORIDE [Concomitant]
     Active Substance: PALONOSETRON HYDROCHLORIDE
     Route: 042
     Dates: start: 20210826, end: 20210829
  16. PALONOSETRON HYDROCHLORIDE [Concomitant]
     Active Substance: PALONOSETRON HYDROCHLORIDE
     Route: 048
     Dates: start: 20210916, end: 20210918
  17. PALONOSETRON HYDROCHLORIDE [Concomitant]
     Active Substance: PALONOSETRON HYDROCHLORIDE
     Route: 042
     Dates: start: 20210625, end: 20210628
  18. FOSAPREPITANT DIMEGLUMINE [Concomitant]
     Active Substance: FOSAPREPITANT DIMEGLUMINE
     Route: 042
     Dates: start: 20210625, end: 20210625
  19. FOSAPREPITANT DIMEGLUMINE [Concomitant]
     Active Substance: FOSAPREPITANT DIMEGLUMINE
     Route: 042
     Dates: start: 20210714, end: 20210714
  20. FOSAPREPITANT DIMEGLUMINE [Concomitant]
     Active Substance: FOSAPREPITANT DIMEGLUMINE
     Route: 042
     Dates: start: 20210804, end: 20210804
  21. FOSAPREPITANT DIMEGLUMINE [Concomitant]
     Active Substance: FOSAPREPITANT DIMEGLUMINE
     Route: 042
     Dates: start: 20210826, end: 20210826
  22. DIPHENHYDRAMINE HYDROCHLORIDE [Concomitant]
     Active Substance: DIPHENHYDRAMINE HYDROCHLORIDE
     Route: 030
     Dates: start: 20210625, end: 20210628
  23. DIPHENHYDRAMINE HYDROCHLORIDE [Concomitant]
     Active Substance: DIPHENHYDRAMINE HYDROCHLORIDE
     Route: 030
     Dates: start: 20210714, end: 20210716
  24. DIPHENHYDRAMINE HYDROCHLORIDE [Concomitant]
     Active Substance: DIPHENHYDRAMINE HYDROCHLORIDE
     Route: 030
     Dates: start: 20210804, end: 20210806
  25. DIPHENHYDRAMINE HYDROCHLORIDE [Concomitant]
     Active Substance: DIPHENHYDRAMINE HYDROCHLORIDE
     Route: 030
     Dates: start: 20210826, end: 20210829
  26. METOCLOPRAMIDE HYDROCHLORIDE [Concomitant]
     Active Substance: METOCLOPRAMIDE HYDROCHLORIDE
     Route: 030
     Dates: start: 20210625, end: 20210628
  27. METOCLOPRAMIDE HYDROCHLORIDE [Concomitant]
     Active Substance: METOCLOPRAMIDE HYDROCHLORIDE
     Route: 030
     Dates: start: 20210714, end: 20210714
  28. METOCLOPRAMIDE HYDROCHLORIDE [Concomitant]
     Active Substance: METOCLOPRAMIDE HYDROCHLORIDE
     Route: 030
     Dates: start: 20210804, end: 20210806
  29. METOCLOPRAMIDE HYDROCHLORIDE [Concomitant]
     Active Substance: METOCLOPRAMIDE HYDROCHLORIDE
     Route: 030
     Dates: start: 20210826, end: 20210829
  30. OMEPRAZOLE SODIUM [Concomitant]
     Active Substance: OMEPRAZOLE SODIUM
     Indication: Abdominal discomfort
     Route: 042
     Dates: start: 20210625, end: 20210628
  31. OMEPRAZOLE SODIUM [Concomitant]
     Active Substance: OMEPRAZOLE SODIUM
     Route: 042
     Dates: start: 20210714, end: 20210714
  32. OMEPRAZOLE SODIUM [Concomitant]
     Active Substance: OMEPRAZOLE SODIUM
     Route: 042
     Dates: start: 20210804, end: 20210806
  33. OMEPRAZOLE SODIUM [Concomitant]
     Active Substance: OMEPRAZOLE SODIUM
     Route: 042
     Dates: start: 20210826, end: 20210827
  34. OMEPRAZOLE SODIUM [Concomitant]
     Active Substance: OMEPRAZOLE SODIUM
     Route: 042
     Dates: start: 20210625, end: 20210625
  35. OMEPRAZOLE SODIUM [Concomitant]
     Active Substance: OMEPRAZOLE SODIUM
     Route: 042
     Dates: start: 20210826, end: 20210829
  36. SODIUM BICARBONATE [Concomitant]
     Active Substance: SODIUM BICARBONATE
     Route: 042
     Dates: start: 20210625, end: 20210628
  37. SODIUM BICARBONATE [Concomitant]
     Active Substance: SODIUM BICARBONATE
     Route: 042
     Dates: start: 20210804, end: 20210804
  38. SODIUM BICARBONATE [Concomitant]
     Active Substance: SODIUM BICARBONATE
     Route: 042
     Dates: start: 20210826, end: 20210828
  39. PEGYLATED RECOMBINANT HUMAN GRANULOCYTE COLONY- STIMULATING FACTOR INJ [Concomitant]
     Route: 055
     Dates: start: 20210628, end: 20210628
  40. SODIUM HYDROGEN CHLORIDE (UNK INGREDIENTS) [Concomitant]
  41. ALBUMIN HUMAN [Concomitant]
     Active Substance: ALBUMIN HUMAN
     Indication: Hypoalbuminaemia
     Dates: start: 20210616, end: 20210616
  42. ALBUMIN HUMAN [Concomitant]
     Active Substance: ALBUMIN HUMAN
     Dates: start: 20210619, end: 20210619
  43. AMBROXOL HYDROCHLORIDE [Concomitant]
     Active Substance: AMBROXOL HYDROCHLORIDE
     Dosage: 4100 IU
     Route: 042
     Dates: start: 20210916, end: 20210916
  44. AMBROXOL HYDROCHLORIDE [Concomitant]
     Active Substance: AMBROXOL HYDROCHLORIDE
     Route: 042
     Dates: start: 20211022, end: 20211026
  45. AMBROXOL HYDROCHLORIDE [Concomitant]
     Active Substance: AMBROXOL HYDROCHLORIDE
     Route: 042
     Dates: start: 20210616, end: 20210628
  46. DOXOFYLLINE [Concomitant]
     Active Substance: DOXOFYLLINE
     Indication: Cough
     Dates: start: 20210616, end: 20210628
  47. DOXOFYLLINE [Concomitant]
     Active Substance: DOXOFYLLINE
     Indication: Productive cough
     Route: 042
     Dates: start: 20211022, end: 20211023
  48. DOXOFYLLINE [Concomitant]
     Active Substance: DOXOFYLLINE
     Route: 042
     Dates: start: 20210916, end: 20210916
  49. COMPOUND AMINOBARBITAL INJECTION (UNK INGREDIENTS) [Concomitant]
     Indication: Pyrexia
     Dates: start: 20210606, end: 20210610
  50. INDOMETHACIN [Concomitant]
     Active Substance: INDOMETHACIN
     Indication: Pyrexia
     Dates: start: 20210620, end: 20210620
  51. NAPROXEN [Concomitant]
     Active Substance: NAPROXEN
     Indication: Pyrexia
     Route: 048
     Dates: start: 20210626, end: 20210626
  52. ERYTHROPOIETIN [Concomitant]
     Active Substance: ERYTHROPOIETIN
     Indication: Anaemia
     Dates: start: 20210616, end: 20210616
  53. ERYTHROPOIETIN [Concomitant]
     Active Substance: ERYTHROPOIETIN
     Dates: start: 20210619, end: 20210619
  54. ERYTHROPOIETIN [Concomitant]
     Active Substance: ERYTHROPOIETIN
     Dates: start: 20210621, end: 20210621
  55. ERYTHROPOIETIN [Concomitant]
     Active Substance: ERYTHROPOIETIN
     Dates: start: 20210628, end: 20210628
  56. MAGNESIUM ISOGLYCYRRHIZINATE [Concomitant]
     Active Substance: MAGNESIUM ISOGLYCYRRHIZINATE
     Dates: start: 20210618, end: 20210628
  57. DOMPERIDONE [Concomitant]
     Active Substance: DOMPERIDONE
     Indication: Nausea
     Route: 048
     Dates: start: 20210626, end: 20210627
  58. DOMPERIDONE [Concomitant]
     Active Substance: DOMPERIDONE
     Indication: Vomiting
  59. ONDANSETRON HYDROCHLORIDE [Concomitant]
     Active Substance: ONDANSETRON HYDROCHLORIDE
     Route: 048
     Dates: start: 20210628, end: 20210703
  60. ONDANSETRON HYDROCHLORIDE [Concomitant]
     Active Substance: ONDANSETRON HYDROCHLORIDE
     Route: 048
     Dates: start: 20210716, end: 20210721
  61. ONDANSETRON HYDROCHLORIDE [Concomitant]
     Active Substance: ONDANSETRON HYDROCHLORIDE
     Route: 048
     Dates: start: 20210806, end: 20210811
  62. SHENGBAI MIXTURE (UNK INGREDIENTS) [Concomitant]
     Route: 048
     Dates: start: 20210716, end: 20210723
  63. MECAPEGFILGRASTIM [Concomitant]
     Active Substance: MECAPEGFILGRASTIM
     Route: 055
     Dates: start: 20210807, end: 20210807
  64. MECAPEGFILGRASTIM [Concomitant]
     Active Substance: MECAPEGFILGRASTIM
     Route: 055
     Dates: start: 20210829, end: 20210829
  65. ENOXAPARIN SODIUM [Concomitant]
     Active Substance: ENOXAPARIN SODIUM
     Dosage: 4000 IU
     Route: 055
     Dates: start: 20210826, end: 20210826
  66. LACTULOSE [Concomitant]
     Active Substance: LACTULOSE
     Indication: Constipation
     Route: 048
     Dates: start: 20210825, end: 20210830
  67. LACTULOSE [Concomitant]
     Active Substance: LACTULOSE
     Indication: Abdominal distension
  68. GLYCERINE ENEMA [Concomitant]
     Indication: Constipation
     Route: 067
     Dates: start: 20210826, end: 20210826
  69. GLYCERINE ENEMA [Concomitant]
     Indication: Abdominal distension
     Route: 067
     Dates: start: 20210826, end: 20210827
  70. MEGESTROL ACETATE [Concomitant]
     Active Substance: MEGESTROL ACETATE
     Indication: Decreased appetite
     Route: 048
     Dates: start: 20210827, end: 20210905
  71. AMBROXOL HYDROCHLORIDE [Concomitant]
     Active Substance: AMBROXOL HYDROCHLORIDE
     Indication: Cough
     Dosage: 4100 IU
     Route: 042
     Dates: start: 20210916, end: 20210916
  72. AMBROXOL HYDROCHLORIDE [Concomitant]
     Active Substance: AMBROXOL HYDROCHLORIDE
     Indication: Productive cough
  73. ALBUTEROL SULFATE [Concomitant]
     Active Substance: ALBUTEROL SULFATE
     Indication: Cough
     Route: 055
     Dates: start: 20210916, end: 20210916
  74. ALBUTEROL SULFATE [Concomitant]
     Active Substance: ALBUTEROL SULFATE
     Indication: Productive cough
  75. BUDESONIDE [Concomitant]
     Active Substance: BUDESONIDE
     Indication: Cough
     Route: 061
     Dates: start: 20210915, end: 20210916
  76. BUDESONIDE [Concomitant]
     Active Substance: BUDESONIDE
     Indication: Productive cough
  77. ACETYLCYSTEINE [Concomitant]
     Active Substance: ACETYLCYSTEINE
     Indication: Productive cough
     Route: 061
     Dates: start: 20210915, end: 20210916
  78. ACETYLCYSTEINE [Concomitant]
     Active Substance: ACETYLCYSTEINE
     Indication: Cough
  79. COMPOUND AMINO ACIDS INJECTION (18AA-IX) [Concomitant]
     Route: 042
     Dates: start: 20210915, end: 20210916
  80. SODIUM POTASSIUM MAGNESIUM CALCIUM AND GLUCOSE [Concomitant]
     Indication: Hyponatraemia
     Route: 042
     Dates: start: 20210915, end: 20210916
  81. MEROPENEM [Concomitant]
     Active Substance: MEROPENEM
     Indication: Pneumonia
     Route: 042
     Dates: start: 20211022, end: 20211022
  82. OMEPRAZOLE [Concomitant]
     Active Substance: OMEPRAZOLE
     Indication: Nausea
     Dates: start: 20210627, end: 20210703
  83. OMEPRAZOLE [Concomitant]
     Active Substance: OMEPRAZOLE
     Indication: Vomiting

REACTIONS (1)
  - Platelet count decreased [Not Recovered/Not Resolved]

NARRATIVE: CASE EVENT DATE: 20210703
